FAERS Safety Report 13354053 (Version 1)
Quarter: 2017Q1

REPORT INFORMATION
  Report Type: Spontaneous
  Country: FR (occurrence: FR)
  Receive Date: 20170321
  Receipt Date: 20170321
  Transmission Date: 20170429
  Serious: Yes (Death, Hospitalization, Other)
  Sender: FDA-Public Use
  Company Number: FR-ALEMBIC PHARMACUETICALS LIMITED-2017SCAL000255

PATIENT

DRUGS (1)
  1. VENLAFAXINE HYDROCHLORIDE. [Suspect]
     Active Substance: VENLAFAXINE HYDROCHLORIDE
     Indication: PRODUCT USED FOR UNKNOWN INDICATION
     Dosage: 1.9 G, UNK

REACTIONS (8)
  - Cardiovascular disorder [Unknown]
  - Acute kidney injury [Unknown]
  - Seizure [Unknown]
  - Overdose [Unknown]
  - Cardiotoxicity [Unknown]
  - Altered state of consciousness [Unknown]
  - Toxicity to various agents [Unknown]
  - Death [Fatal]
